FAERS Safety Report 7151366-3 (Version None)
Quarter: 2010Q4

REPORT INFORMATION
  Report Type: 
  Country: None (occurrence: None)
  Receive Date: 20101210
  Receipt Date: 20101129
  Transmission Date: 20110411
  Serious: Yes (Other)
  Sender: FDA-Public Use
  Company Number: US-ROCHE-747004

PATIENT
  Age: 66 Year
  Sex: Male

DRUGS (2)
  1. BEVACIZUMAB [Suspect]
     Route: 065
  2. LUCENTIS [Suspect]
     Dosage: UNK
     Route: 031
     Dates: start: 20061101

REACTIONS (4)
  - CATARACT [None]
  - CHOROIDAL NEOVASCULARISATION [None]
  - MACULOPATHY [None]
  - RETINAL OEDEMA [None]
